FAERS Safety Report 5179340-7 (Version None)
Quarter: 2006Q4

REPORT INFORMATION
  Report Type: 
  Country: None (occurrence: None)
  Receive Date: 20061219
  Receipt Date: 20061212
  Transmission Date: 20070319
  Serious: Yes (Hospitalization)
  Sender: FDA-Public Use
  Company Number: GB-GLAXOSMITHKLINE-B0450240A

PATIENT
  Age: 1 Year
  Sex: Male

DRUGS (2)
  1. VENTOLIN [Suspect]
     Indication: WHEEZING
     Route: 055
  2. PREDNISOLONE [Concomitant]

REACTIONS (2)
  - INTENTIONAL OVERDOSE [None]
  - WHEEZING [None]
